FAERS Safety Report 5758969-9 (Version None)
Quarter: 2008Q2

REPORT INFORMATION
  Report Type: 
  Country: None (occurrence: None)
  Receive Date: 20080602
  Receipt Date: 20080516
  Transmission Date: 20081010
  Serious: Yes (Disabling, Other)
  Sender: FDA-Public Use
  Company Number: CERZ-1000224

PATIENT
  Sex: Female
  Weight: 52 kg

DRUGS (4)
  1. CEREZYME [Suspect]
     Indication: GAUCHER'S DISEASE
     Dosage: 30 U/KG, Q4W; 60 U/KG,Q4W; 120 U/KG,
     Dates: start: 20040515, end: 20050622
  2. CEREZYME [Suspect]
     Indication: GAUCHER'S DISEASE
     Dosage: 30 U/KG, Q4W; 60 U/KG,Q4W; 120 U/KG,
     Dates: start: 20050622, end: 20060110
  3. CEREZYME [Suspect]
     Indication: GAUCHER'S DISEASE
     Dosage: 30 U/KG, Q4W; 60 U/KG,Q4W; 120 U/KG,
     Dates: start: 20060110, end: 20060411
  4. ZAVESCA [Suspect]
     Indication: GAUCHER'S DISEASE
     Dosage: 100 U/KG, BID,

REACTIONS (20)
  - ANGIOTENSIN CONVERTING ENZYME INCREASED [None]
  - BONE DISORDER [None]
  - BONE PAIN [None]
  - CHILLS [None]
  - CHITOTRIOSIDASE INCREASED [None]
  - COAGULOPATHY [None]
  - DISEASE PROGRESSION [None]
  - DISEASE RECURRENCE [None]
  - EPILEPSY [None]
  - FATIGUE [None]
  - GASTROINTESTINAL DISORDER [None]
  - GENERAL PHYSICAL HEALTH DETERIORATION [None]
  - GRAND MAL CONVULSION [None]
  - HEPATOSPLENOMEGALY [None]
  - INFUSION RELATED REACTION [None]
  - IRON DEFICIENCY ANAEMIA [None]
  - MENORRHAGIA [None]
  - NO THERAPEUTIC RESPONSE [None]
  - RASH [None]
  - SPLENOMEGALY [None]
